FAERS Safety Report 4403914-1 (Version None)
Quarter: 2004Q3

REPORT INFORMATION
  Report Type: 
  Country: None (occurrence: None)
  Receive Date: 20040719
  Receipt Date: 20040701
  Transmission Date: 20050211
  Serious: Yes (Death)
  Sender: FDA-Public Use
  Company Number: JP-JNJFOC-20040700649

PATIENT
  Age: 62 Year
  Sex: Male

DRUGS (8)
  1. FENTANYL [Suspect]
     Indication: CANCER PAIN
     Dosage: 2.5 MG, 1 IN 72 HOUR, TRANSDERMAL
     Route: 062
     Dates: start: 20040624, end: 20040629
  2. MORPHINE SULFATE [Concomitant]
  3. FAMOTIDINE [Concomitant]
  4. ZOPICLONE (ZOPICLONE) [Concomitant]
  5. METOCLOPRAMIDE [Concomitant]
  6. LACTOMIN (LACTOBACILLUS SPOROGENES) [Concomitant]
  7. DICLOFENAC (DICLOFENAC) [Concomitant]
  8. GLYCERIN (GLYCEROL) [Concomitant]

REACTIONS (1)
  - PNEUMONIA [None]
